FAERS Safety Report 7938966-5 (Version None)
Quarter: 2011Q4

REPORT INFORMATION
  Report Type: 
  Country: None (occurrence: None)
  Receive Date: 20111124
  Receipt Date: 20111122
  Transmission Date: 20120403
  Serious: No
  Sender: FDA-Public Use
  Company Number: US-PFIZER INC-2011286027

PATIENT
  Sex: Female

DRUGS (3)
  1. IBUPROFEN (ADVIL) [Suspect]
     Indication: BACK PAIN
  2. IBUPROFEN (ADVIL) [Suspect]
     Indication: RESPIRATORY DISORDER
  3. IBUPROFEN (ADVIL) [Suspect]
     Indication: MALAISE
     Dosage: 200 MG, UNK
     Route: 048
     Dates: start: 20111121

REACTIONS (1)
  - DYSGEUSIA [None]
